FAERS Safety Report 6292290-8 (Version None)
Quarter: 2009Q3

REPORT INFORMATION
  Report Type: 
  Country: None (occurrence: None)
  Receive Date: 20090731
  Receipt Date: 20090723
  Transmission Date: 20100115
  Serious: Yes (Hospitalization)
  Sender: FDA-Public Use
  Company Number: HU-ROCHE-638738

PATIENT
  Sex: Male
  Weight: 104 kg

DRUGS (3)
  1. RO 49-17838 (GLYT1 INHIBITOR) [Suspect]
     Indication: SCHIZOPHRENIA
     Dosage: PERMANENTLY DISCONTINUED
     Route: 048
     Dates: start: 20090603, end: 20090613
  2. RISPERIDONE [Concomitant]
     Dates: start: 20040204
  3. ALPRAZOLAM [Concomitant]
     Dates: start: 20040128

REACTIONS (1)
  - SUICIDE ATTEMPT [None]
